FAERS Safety Report 10497043 (Version 2)
Quarter: 2019Q1

REPORT INFORMATION
  Report Type: Spontaneous
  Country: CA (occurrence: CA)
  Receive Date: 20141006
  Receipt Date: 20190228
  Transmission Date: 20190417
  Serious: Yes (Hospitalization)
  Sender: FDA-Public Use
  Company Number: CA-AUROBINDO-AUR-APL-2014-10484

PATIENT

DRUGS (3)
  1. DONEPEZIL HYDROCHLORIDE 5 MG [Suspect]
     Active Substance: DONEPEZIL HYDROCHLORIDE
     Dosage: 15 MG, UNK
     Route: 065
  2. DONEPEZIL HYDROCHLORIDE 5 MG [Suspect]
     Active Substance: DONEPEZIL HYDROCHLORIDE
     Indication: PRODUCT USED FOR UNKNOWN INDICATION
     Dosage: 10 MG, UNK
     Route: 065
  3. DONEPEZIL HYDROCHLORIDE 5 MG [Suspect]
     Active Substance: DONEPEZIL HYDROCHLORIDE
     Indication: INTENTIONAL PRODUCT MISUSE
     Dosage: 5 MG, UNK
     Route: 065

REACTIONS (16)
  - Sleep disorder [Recovered/Resolved]
  - Diarrhoea [Recovered/Resolved]
  - Mania [Recovered/Resolved]
  - Abnormal behaviour [Recovered/Resolved]
  - Mood altered [Recovered/Resolved]
  - Irritability [Recovered/Resolved]
  - Energy increased [Recovered/Resolved]
  - Psychomotor hyperactivity [Recovered/Resolved]
  - Flight of ideas [Recovered/Resolved]
  - Drug abuse [Recovered/Resolved]
  - Grandiosity [Recovered/Resolved]
  - Agitation [Recovered/Resolved]
  - Speech disorder [Recovered/Resolved]
  - Overconfidence [Recovered/Resolved]
  - Overdose [Recovered/Resolved]
  - Pressure of speech [Recovered/Resolved]
